FAERS Safety Report 6546374-7 (Version None)
Quarter: 2010Q1

REPORT INFORMATION
  Report Type: 
  Country: None (occurrence: None)
  Receive Date: 20100114
  Receipt Date: 20091113
  Transmission Date: 20100710
  Serious: No
  Sender: FDA-Public Use
  Company Number: 2009BM000311

PATIENT
  Age: 10 Year
  Sex: Male
  Weight: 23.1334 kg

DRUGS (3)
  1. KUVAN [Suspect]
     Indication: PHENYLKETONURIA
     Dosage: 450 MG;QD;PO
     Route: 048
     Dates: start: 20091101
  2. ADDERALL XR 10 [Suspect]
     Dosage: 15 MG;QD;PO
     Route: 048
  3. REMERON [Suspect]
     Dosage: 7.5 MG;HS;PO
     Route: 048
     Dates: start: 20091001

REACTIONS (8)
  - ABDOMINAL PAIN UPPER [None]
  - AGITATION [None]
  - AMNESIA [None]
  - DISTURBANCE IN ATTENTION [None]
  - DRUG ADMINISTRATION ERROR [None]
  - NASOPHARYNGITIS [None]
  - REGRESSIVE BEHAVIOUR [None]
  - SKIN ODOUR ABNORMAL [None]
